FAERS Safety Report 4771556-4 (Version None)
Quarter: 2005Q3

REPORT INFORMATION
  Report Type: 
  Country: None (occurrence: None)
  Receive Date: 20050914
  Receipt Date: 20050914
  Transmission Date: 20060218
  Serious: Yes (Life-Threatening)
  Sender: FDA-Public Use
  Company Number: None

PATIENT
  Age: 32 Year
  Sex: Male
  Weight: 90 kg

DRUGS (2)
  1. METHADONE HCL [Suspect]
     Indication: FIBROMYALGIA
     Dosage: 40MG SIX TIMES A DAY PO
     Route: 048
  2. SOMA [Concomitant]

REACTIONS (5)
  - AGITATION [None]
  - CONFUSIONAL STATE [None]
  - DYSKINESIA [None]
  - HALLUCINATION [None]
  - UNRESPONSIVE TO VERBAL STIMULI [None]
